FAERS Safety Report 7678561-9 (Version None)
Quarter: 2011Q3

REPORT INFORMATION
  Report Type: 
  Country: None (occurrence: None)
  Receive Date: 20110811
  Receipt Date: 20110804
  Transmission Date: 20111222
  Serious: Yes (Death, Hospitalization)
  Sender: FDA-Public Use
  Company Number: GB-ABBOTT-10P-167-0658833-00

PATIENT
  Sex: Female
  Weight: 56 kg

DRUGS (2)
  1. HUMIRA [Suspect]
     Indication: RHEUMATOID ARTHRITIS
     Route: 058
     Dates: start: 20060424
  2. METHOTREXATE [Concomitant]
     Indication: PRODUCT USED FOR UNKNOWN INDICATION
     Dates: start: 20060120

REACTIONS (7)
  - RENAL IMPAIRMENT [None]
  - METASTASES TO BONE [None]
  - PNEUMONIA [None]
  - GENERAL PHYSICAL HEALTH DETERIORATION [None]
  - URINARY TRACT INFECTION [None]
  - LUNG NEOPLASM MALIGNANT [None]
  - ADRENAL MASS [None]
